FAERS Safety Report 24265214 (Version 1)
Quarter: 2024Q3

REPORT INFORMATION
  Report Type: Report from Study
  Country: JP (occurrence: JP)
  Receive Date: 20240829
  Receipt Date: 20240829
  Transmission Date: 20241017
  Serious: Yes (Hospitalization)
  Sender: DAIICHI
  Company Number: JP-DSJP-DSJ-2022-146151

PATIENT
  Age: 22 Year
  Sex: Male

DRUGS (13)
  1. QUIZARTINIB [Suspect]
     Active Substance: QUIZARTINIB
     Indication: Acute myeloid leukaemia
     Dosage: 26.5 MG, QD
     Route: 048
     Dates: start: 20220518, end: 20220524
  2. QUIZARTINIB [Suspect]
     Active Substance: QUIZARTINIB
     Dosage: 17.7 MG, QD
     Route: 048
     Dates: start: 20220603, end: 20220628
  3. QUIZARTINIB [Suspect]
     Active Substance: QUIZARTINIB
     Dosage: 17.7 MG, QD
     Route: 048
     Dates: start: 20220824, end: 20221016
  4. QUIZARTINIB [Suspect]
     Active Substance: QUIZARTINIB
     Dosage: 17.7 MG, QD
     Route: 048
     Dates: start: 20221114
  5. QUIZARTINIB [Suspect]
     Active Substance: QUIZARTINIB
     Dosage: 17.7 MG, QD
     Route: 048
     Dates: start: 20240104, end: 20240117
  6. AZACITIDINE [Suspect]
     Active Substance: AZACITIDINE
     Indication: Acute myeloid leukaemia
     Dosage: UNK
     Route: 065
     Dates: start: 20221017, end: 20221113
  7. AZACITIDINE [Suspect]
     Active Substance: AZACITIDINE
     Dosage: 60 MG/M2/DAY
     Route: 065
     Dates: start: 20231127, end: 20231129
  8. AZACITIDINE [Suspect]
     Active Substance: AZACITIDINE
     Dosage: 60 MG/M2/DAY
     Route: 065
     Dates: start: 20240219, end: 20240221
  9. AZACITIDINE [Suspect]
     Active Substance: AZACITIDINE
     Dosage: 70 MG/M2/DAY
     Route: 065
     Dates: start: 20240415, end: 20240417
  10. VENETOCLAX [Suspect]
     Active Substance: VENETOCLAX
     Indication: Acute myeloid leukaemia
     Dosage: UNK
     Route: 065
     Dates: start: 20221017, end: 20221113
  11. VENETOCLAX [Suspect]
     Active Substance: VENETOCLAX
     Dosage: 50MG/DAY
     Route: 065
     Dates: start: 20231127, end: 20231217
  12. VENETOCLAX [Suspect]
     Active Substance: VENETOCLAX
     Dosage: 100MG/DAY
     Route: 065
     Dates: start: 20240219, end: 20240310
  13. VENETOCLAX [Suspect]
     Active Substance: VENETOCLAX
     Dosage: 100MG/DAY
     Route: 065
     Dates: start: 20240415, end: 20240505

REACTIONS (4)
  - Electrocardiogram QT prolonged [Recovered/Resolved]
  - White blood cell count decreased [Recovered/Resolved]
  - Neutrophil count decreased [Recovered/Resolved]
  - Platelet count decreased [Recovered/Resolved]

NARRATIVE: CASE EVENT DATE: 20220518
